FAERS Safety Report 4300699-4 (Version None)
Quarter: 2004Q1

REPORT INFORMATION
  Report Type: 
  Country: None (occurrence: None)
  Receive Date: 20040219
  Receipt Date: 20040219
  Transmission Date: 20041129
  Serious: Yes (Hospitalization)
  Sender: FDA-Public Use
  Company Number: None

PATIENT
  Age: 50 Year
  Sex: Male
  Weight: 75.5 kg

DRUGS (9)
  1. FLUDARABINE ATG 2200 MGX2 011004-011104 [Suspect]
     Indication: CHEMOTHERAPY
     Dosage: 56 MG QD IV
     Route: 042
     Dates: start: 20040105, end: 20040109
  2. CYTOXAN [Suspect]
     Dosage: 1.86 G QD IV
     Route: 042
     Dates: start: 20040110, end: 20040111
  3. GENRAFT [Concomitant]
  4. TRIAMCINOLONE [Concomitant]
  5. PREVACID [Concomitant]
  6. ACTIGALL [Concomitant]
  7. ACYCLOVIR [Concomitant]
  8. MAGOX [Concomitant]
  9. DARVOCET-N 100 [Concomitant]

REACTIONS (4)
  - ARTHRALGIA [None]
  - FATIGUE [None]
  - PAIN [None]
  - PYREXIA [None]
